FAERS Safety Report 8136265 (Version 13)
Quarter: 2014Q1

REPORT INFORMATION
  Report Type: Spontaneous
  Country: GB (occurrence: GB)
  Receive Date: 20110914
  Receipt Date: 20140314
  Transmission Date: 20141002
  Serious: Yes (Life-Threatening, Hospitalization, Disabling, Other)
  Sender: FDA-Public Use
  Company Number: GB-ASTRAZENECA-2011SE53176

PATIENT
  Age: 31 Year
  Sex: Female
  Weight: 63.5 kg

DRUGS (36)
  1. OMEPRAZOLE [Suspect]
     Indication: DYSPEPSIA
     Route: 048
     Dates: start: 201103
  2. OMEPRAZOLE [Interacting]
     Indication: GASTRIC PH DECREASED
     Route: 048
     Dates: start: 201103
  3. OMEPRAZOLE [Interacting]
     Indication: DYSPEPSIA
     Route: 048
     Dates: start: 20110525
  4. OMEPRAZOLE [Interacting]
     Indication: GASTRIC PH DECREASED
     Route: 048
     Dates: start: 20110525
  5. QUETIAPINE [Interacting]
     Indication: PSYCHOTIC DISORDER
     Route: 048
     Dates: start: 20110224, end: 20110506
  6. CLONAZEPAM [Interacting]
     Indication: SEDATION
     Route: 048
     Dates: start: 20110224, end: 20110410
  7. DIAZEPAM [Interacting]
     Indication: MUSCLE SPASMS
     Route: 065
  8. DIAZEPAM [Interacting]
     Indication: MUSCLE SPASMS
     Route: 065
     Dates: start: 20110725
  9. MIRTAZAPINE [Interacting]
     Indication: DEPRESSION
     Route: 048
     Dates: start: 20100923, end: 20101108
  10. MIRTAZAPINE [Interacting]
     Indication: DEPRESSION
     Dosage: TWO TIMES A DAY
     Route: 048
  11. SEROXAT [Interacting]
     Indication: DEPRESSION
     Route: 048
     Dates: start: 1997
  12. SEROXAT [Interacting]
     Indication: POST-TRAUMATIC STRESS DISORDER
     Route: 048
     Dates: start: 1997
  13. SEROXAT [Interacting]
     Indication: DEPRESSION
     Route: 048
  14. SEROXAT [Interacting]
     Indication: POST-TRAUMATIC STRESS DISORDER
     Route: 048
  15. SEROXAT [Interacting]
     Indication: DEPRESSION
     Route: 048
     Dates: start: 19990801
  16. SEROXAT [Interacting]
     Indication: POST-TRAUMATIC STRESS DISORDER
     Route: 048
     Dates: start: 19990801
  17. SEROXAT [Interacting]
     Indication: DEPRESSION
     Route: 048
     Dates: end: 201105
  18. SEROXAT [Interacting]
     Indication: POST-TRAUMATIC STRESS DISORDER
     Route: 048
     Dates: end: 201105
  19. SEROXAT [Interacting]
     Indication: DEPRESSION
     Route: 048
     Dates: start: 201105, end: 20110706
  20. SEROXAT [Interacting]
     Indication: POST-TRAUMATIC STRESS DISORDER
     Route: 048
     Dates: start: 201105, end: 20110706
  21. AMITRIPTYLINE [Interacting]
     Indication: MUSCLE SPASMS
     Route: 065
     Dates: start: 20110810
  22. AMITRIPTYLINE [Interacting]
     Indication: NEURALGIA
     Route: 065
     Dates: start: 20110810
  23. CODEINE [Interacting]
     Indication: ANALGESIC THERAPY
     Route: 048
     Dates: start: 2002, end: 2002
  24. CODEINE [Interacting]
     Indication: ANALGESIC THERAPY
     Route: 048
     Dates: start: 2008, end: 2008
  25. CODEINE [Interacting]
     Indication: ANALGESIC THERAPY
     Route: 048
     Dates: start: 20110615, end: 20110723
  26. LORAZEPAM [Interacting]
     Indication: SEDATION
     Route: 065
     Dates: start: 20110224, end: 20110410
  27. LORAZEPAM [Interacting]
     Indication: SEDATION
     Route: 048
     Dates: start: 20110523, end: 20110627
  28. DOMPERIDONE [Interacting]
     Route: 065
  29. PROCYCLIDINE [Interacting]
     Indication: EXTRAPYRAMIDAL DISORDER
     Route: 065
     Dates: start: 1995, end: 1996
  30. PROCYCLIDINE [Interacting]
     Indication: OCULOGYRIC CRISIS
     Route: 065
     Dates: start: 1995, end: 1996
  31. PROCYCLIDINE [Interacting]
     Indication: EXTRAPYRAMIDAL DISORDER
     Route: 048
     Dates: start: 20110503, end: 20110510
  32. PROCYCLIDINE [Interacting]
     Indication: OCULOGYRIC CRISIS
     Route: 048
     Dates: start: 20110503, end: 20110510
  33. TRAMADOL [Interacting]
     Indication: NECK PAIN
     Dosage: FOUR TIMES A DAY
     Route: 048
     Dates: start: 20080722
  34. TRAMADOL [Interacting]
     Indication: ANALGESIC THERAPY
     Dosage: FOUR TIMES A DAY
     Route: 048
     Dates: start: 20080722
  35. TRAMADOL [Interacting]
     Indication: NECK PAIN
     Dosage: FOUR TIMES A DAY
     Route: 048
     Dates: start: 20081201, end: 20101210
  36. TRAMADOL [Interacting]
     Indication: ANALGESIC THERAPY
     Dosage: FOUR TIMES A DAY
     Route: 048
     Dates: start: 20081201, end: 20101210

REACTIONS (92)
  - Drug interaction [Unknown]
  - Serotonin syndrome [Unknown]
  - Drug withdrawal syndrome [Unknown]
  - Exposure during pregnancy [Unknown]
  - Hallucinations, mixed [Unknown]
  - Cyanosis [Unknown]
  - Cogwheel rigidity [Unknown]
  - Contusion [Unknown]
  - Convulsion [Not Recovered/Not Resolved]
  - Dissociation [Not Recovered/Not Resolved]
  - Diarrhoea [Unknown]
  - Disorientation [Not Recovered/Not Resolved]
  - Drooling [Unknown]
  - Toxicity to various agents [Unknown]
  - Dyskinesia [Unknown]
  - Tinnitus [Unknown]
  - Gastric pH decreased [Unknown]
  - Heart rate increased [Unknown]
  - Agitation [Unknown]
  - Anxiety [Unknown]
  - Decreased appetite [Unknown]
  - Blood sodium decreased [Unknown]
  - Vision blurred [Unknown]
  - Delirium [Unknown]
  - Depression [Unknown]
  - Dyspnoea [Unknown]
  - Dizziness [Unknown]
  - Emotional disorder [Unknown]
  - Swelling face [Unknown]
  - Feeling of despair [Unknown]
  - Derealisation [Not Recovered/Not Resolved]
  - Pyrexia [Unknown]
  - Headache [Unknown]
  - Incontinence [Not Recovered/Not Resolved]
  - Arthralgia [Unknown]
  - Limb injury [Unknown]
  - Sensory loss [Unknown]
  - Menstrual disorder [Unknown]
  - Disturbance in attention [Unknown]
  - Mood swings [Unknown]
  - Muscle disorder [Unknown]
  - Muscle spasms [Not Recovered/Not Resolved]
  - Neuroleptic malignant syndrome [Unknown]
  - Nightmare [Unknown]
  - Hypoaesthesia [Not Recovered/Not Resolved]
  - Eye pain [Unknown]
  - Paraesthesia [Unknown]
  - Pruritus [Unknown]
  - Psychotic disorder [Recovered/Resolved]
  - Mydriasis [Unknown]
  - Restlessness [Unknown]
  - Schizophrenia [Unknown]
  - Malaise [Unknown]
  - Skin discolouration [Not Recovered/Not Resolved]
  - Sleep disorder [Unknown]
  - Aphasia [Recovered/Resolved]
  - Parosmia [Unknown]
  - Suicidal ideation [Not Recovered/Not Resolved]
  - Hyperhidrosis [Unknown]
  - H1N1 influenza [Unknown]
  - Balance disorder [Unknown]
  - Urinary retention [Unknown]
  - Visual impairment [Unknown]
  - Vomiting [Unknown]
  - Gait disturbance [Unknown]
  - Asthenia [Unknown]
  - Feeling jittery [Unknown]
  - Mania [Unknown]
  - Premature labour [Unknown]
  - Pallor [Unknown]
  - Paralysis [Unknown]
  - Fatigue [Unknown]
  - Tachycardia [Unknown]
  - Tremor [Not Recovered/Not Resolved]
  - Eye pain [Unknown]
  - Speech disorder [Unknown]
  - Dystonia [Unknown]
  - Feeling of body temperature change [Unknown]
  - Musculoskeletal stiffness [Unknown]
  - Hypoaesthesia oral [Unknown]
  - Swollen tongue [Unknown]
  - Mental disorder [Unknown]
  - Nervous system disorder [Unknown]
  - VIIth nerve paralysis [Unknown]
  - Depersonalisation [Not Recovered/Not Resolved]
  - Confusional state [Not Recovered/Not Resolved]
  - Restless legs syndrome [Not Recovered/Not Resolved]
  - Muscle rigidity [Unknown]
  - Regurgitation [Unknown]
  - Paraesthesia [Unknown]
  - Paraesthesia [Unknown]
  - Lip swelling [Unknown]
